FAERS Safety Report 16709572 (Version 2)
Quarter: 2019Q4

REPORT INFORMATION
  Report Type: Report from Study
  Country: US (occurrence: US)
  Receive Date: 20190816
  Receipt Date: 20191212
  Transmission Date: 20200122
  Serious: No
  Sender: FDA-Public Use
  Company Number: PHEH2019US033598

PATIENT
  Age: 68 Year
  Sex: Female

DRUGS (2)
  1. COSENTYX [Suspect]
     Active Substance: SECUKINUMAB
     Dosage: 300 MG, QW
     Route: 058
     Dates: start: 20180813, end: 20190912
  2. COSENTYX [Suspect]
     Active Substance: SECUKINUMAB
     Indication: PSORIASIS
     Dosage: UNK
     Route: 065

REACTIONS (5)
  - Pain [Unknown]
  - Blister [Not Recovered/Not Resolved]
  - Gait disturbance [Unknown]
  - Psoriasis [Unknown]
  - Tinea pedis [Unknown]

NARRATIVE: CASE EVENT DATE: 20190820
